FAERS Safety Report 25392141 (Version 1)
Quarter: 2025Q2

REPORT INFORMATION
  Report Type: Spontaneous
  Country: CN (occurrence: CN)
  Receive Date: 20250603
  Receipt Date: 20250603
  Transmission Date: 20250717
  Serious: Yes (Hospitalization)
  Sender: SANDOZ
  Company Number: CN-SANDOZ-SDZ2025CN038015

PATIENT
  Age: 67 Year
  Sex: Male

DRUGS (2)
  1. VORICONAZOLE [Suspect]
     Active Substance: VORICONAZOLE
     Indication: Tracheitis
     Dosage: 0.2 G, Q12H
     Route: 041
     Dates: start: 20241218, end: 20250226
  2. VORICONAZOLE [Suspect]
     Active Substance: VORICONAZOLE
     Indication: Tracheitis
     Dosage: 200 MG, BID
     Route: 048
     Dates: start: 20241220, end: 20250226

REACTIONS (4)
  - Hepatic function abnormal [Recovering/Resolving]
  - Tracheitis [Recovering/Resolving]
  - Condition aggravated [Recovering/Resolving]
  - Vision blurred [Recovering/Resolving]

NARRATIVE: CASE EVENT DATE: 20250221
